FAERS Safety Report 25259141 (Version 1)
Quarter: 2025Q2

REPORT INFORMATION
  Report Type: Spontaneous
  Country: US (occurrence: None)
  Receive Date: 20250430
  Receipt Date: 20250430
  Transmission Date: 20250717
  Serious: Yes (Hospitalization)
  Sender: FDA-CTU
  Company Number: None

PATIENT
  Age: 58 Year
  Sex: Male

DRUGS (1)
  1. OCTREOTIDE ACETATE [Suspect]
     Active Substance: OCTREOTIDE ACETATE
     Dosage: OTHER STRENGTH : 100 UG/ML;?FREQUENCY : 3 TIMES A DAY;?

REACTIONS (4)
  - Abdominal pain [None]
  - Carcinoid syndrome [None]
  - Lacrimation increased [None]
  - Paraesthesia [None]
